FAERS Safety Report 6932124-9 (Version None)
Quarter: 2010Q3

REPORT INFORMATION
  Report Type: 
  Country: None (occurrence: None)
  Receive Date: 20100819
  Receipt Date: 20100810
  Transmission Date: 20110219
  Serious: Yes (Other)
  Sender: FDA-Public Use
  Company Number: A0876396A

PATIENT

DRUGS (1)
  1. VOTRIENT [Suspect]
     Indication: PRODUCT USED FOR UNKNOWN INDICATION
     Route: 065
     Dates: start: 20100601

REACTIONS (5)
  - CONTUSION [None]
  - DYSGEUSIA [None]
  - FATIGUE [None]
  - HEPATOTOXICITY [None]
  - RASH [None]
